FAERS Safety Report 8156390-X (Version None)
Quarter: 2012Q1

REPORT INFORMATION
  Report Type: 
  Country: None (occurrence: None)
  Receive Date: 20120216
  Receipt Date: 20120210
  Transmission Date: 20120608
  Serious: Yes (Other)
  Sender: FDA-Public Use
  Company Number: 1000027132

PATIENT
  Age: 65 Year
  Sex: Female

DRUGS (11)
  1. SAVELLA [Suspect]
     Indication: FIBROMYALGIA
     Dosage: SEE IMAGE
     Dates: start: 20111115, end: 20111121
  2. SAVELLA [Suspect]
     Indication: FIBROMYALGIA
     Dosage: SEE IMAGE
     Dates: start: 20111112, end: 20111114
  3. SAVELLA [Suspect]
     Indication: FIBROMYALGIA
     Dosage: SEE IMAGE
     Dates: start: 20111129
  4. SAVELLA [Suspect]
     Indication: FIBROMYALGIA
     Dosage: SEE IMAGE
     Dates: start: 20111122, end: 20111128
  5. BENAZEPRIL HCTZ (BENAZEPRIL HYDROCHLOROTHIAZIDE) (BENAZEPRIL, HYDROCHL [Concomitant]
  6. NABUMETONE (NABUMETONE) (NABUMETONE) [Concomitant]
  7. PRAVASTATIN [Concomitant]
  8. SAVELLA [Suspect]
     Indication: FIBROMYALGIA
     Dosage: 50 MG BID (50 MG, 2 IN 1 D), ORAL
     Route: 048
     Dates: end: 20070107
  9. EFFEXROX (VENLAFAXINE HYDROCHLORIDE) (VENLAFAXINE HYDROCHLORIDE) [Concomitant]
  10. FOSAMAX [Concomitant]
  11. TRAMODOL HCL (TRAMADOL HYDROCHLORIDE) (TRAMADOL HYDROCHLORIDE) [Concomitant]

REACTIONS (7)
  - MALAISE [None]
  - DERMATITIS [None]
  - RASH PAPULAR [None]
  - NAUSEA [None]
  - ORAL PRURITUS [None]
  - RASH PRURITIC [None]
  - LIP SWELLING [None]
